FAERS Safety Report 23072641 (Version 1)
Quarter: 2023Q4

REPORT INFORMATION
  Report Type: Spontaneous
  Country: US (occurrence: US)
  Receive Date: 20231017
  Receipt Date: 20231017
  Transmission Date: 20240110
  Serious: Yes (Life-Threatening, Hospitalization)
  Sender: FDA-Public Use
  Company Number: US-drreddys-LIT/USA/23/0179703

PATIENT
  Age: 59 Year
  Sex: Male

DRUGS (7)
  1. AMLODIPINE MALEATE [Suspect]
     Active Substance: AMLODIPINE MALEATE
     Indication: Product used for unknown indication
  2. METOPROLOL SUCCINATE [Suspect]
     Active Substance: METOPROLOL SUCCINATE
     Indication: Product used for unknown indication
  3. DIPHENHYDRAMINE HYDROCHLORIDE [Suspect]
     Active Substance: DIPHENHYDRAMINE HYDROCHLORIDE
     Indication: Product used for unknown indication
  4. LORAZEPAM [Suspect]
     Active Substance: LORAZEPAM
     Indication: Product used for unknown indication
  5. LISINOPRIL [Suspect]
     Active Substance: LISINOPRIL
     Indication: Hypertension
  6. GABAPENTIN [Suspect]
     Active Substance: GABAPENTIN
     Indication: Product used for unknown indication
  7. MIRTAZAPINE [Suspect]
     Active Substance: MIRTAZAPINE
     Indication: Product used for unknown indication

REACTIONS (2)
  - Distributive shock [Unknown]
  - Intentional product misuse [Unknown]
